FAERS Safety Report 21509865 (Version 1)
Quarter: 2022Q4

REPORT INFORMATION
  Report Type: Spontaneous
  Country: JP (occurrence: JP)
  Receive Date: 20221026
  Receipt Date: 20221026
  Transmission Date: 20230113
  Serious: No
  Sender: FDA-Public Use
  Company Number: JP-JAZZ-2021-JP-011945

PATIENT
  Age: 19 Year
  Sex: Male
  Weight: 61.6 kg

DRUGS (4)
  1. DEFITELIO [Suspect]
     Active Substance: DEFIBROTIDE SODIUM
     Indication: Venoocclusive liver disease
     Dosage: 25 MILLIGRAM/KILOGRAM, QD
     Route: 042
     Dates: start: 20210524, end: 20210702
  2. DEFITELIO [Suspect]
     Active Substance: DEFIBROTIDE SODIUM
     Dosage: 25 MILLIGRAM/KILOGRAM, QD
     Route: 042
     Dates: start: 20210705, end: 20210727
  3. ANTITHROMBIN GAMMA [Concomitant]
     Indication: Product used for unknown indication
     Dosage: UNK
     Dates: start: 20210604, end: 20210604
  4. ANTITHROMBIN GAMMA [Concomitant]
     Dosage: UNK
     Dates: start: 20210727, end: 20210727

REACTIONS (1)
  - Platelet count decreased [Unknown]

NARRATIVE: CASE EVENT DATE: 20210101
